FAERS Safety Report 8362191-X (Version None)
Quarter: 2012Q2

REPORT INFORMATION
  Report Type: 
  Country: None (occurrence: None)
  Receive Date: 20120515
  Receipt Date: 20120504
  Transmission Date: 20120825
  Serious: Yes (Other)
  Sender: FDA-Public Use
  Company Number: FR-MERCK-1205USA01901

PATIENT
  Age: 75 Year
  Sex: Male

DRUGS (11)
  1. ALFUZOSIN HCL [Suspect]
     Route: 048
     Dates: start: 20120318, end: 20120323
  2. FLAGYL [Suspect]
     Route: 048
     Dates: start: 20120318, end: 20120322
  3. IRBESARTAN [Concomitant]
     Route: 048
  4. PRIMAXIN [Suspect]
     Route: 051
     Dates: start: 20120318, end: 20120322
  5. LANTUS [Concomitant]
     Route: 058
  6. ONDANSETRON HYDROCHLORIDE [Suspect]
     Route: 030
     Dates: start: 20120316, end: 20120322
  7. CALCIPARINE [Suspect]
     Route: 058
     Dates: start: 20120316, end: 20120322
  8. TRAMADOL HCL [Suspect]
     Route: 048
     Dates: start: 20120317, end: 20120322
  9. NICARDIPINE HYDROCHLORIDE [Suspect]
     Route: 048
     Dates: start: 20120318, end: 20120323
  10. BUMETANIDE [Concomitant]
     Route: 048
  11. ACETAMINOPHEN [Concomitant]
     Route: 048
     Dates: start: 20120317, end: 20120323

REACTIONS (2)
  - ERYTHEMA [None]
  - PRURITUS [None]
